FAERS Safety Report 24768910 (Version 1)
Quarter: 2024Q4

REPORT INFORMATION
  Report Type: Spontaneous
  Country: US (occurrence: US)
  Receive Date: 20241224
  Receipt Date: 20241224
  Transmission Date: 20250115
  Serious: No
  Sender: STALLERGENES
  Company Number: US-AIMMUNE THERAPEUTICS, INC.-2024AIMT01040

PATIENT
  Sex: Female

DRUGS (3)
  1. PALFORZIA [Suspect]
     Active Substance: PEANUT
     Indication: Food allergy
     Dosage: IDE (0.5MG-6MG),  ONCE
  2. PALFORZIA [Suspect]
     Active Substance: PEANUT
     Dosage: 200 MG, 1X/DAY
  3. PALFORZIA [Suspect]
     Active Substance: PEANUT
     Dosage: 200 MG, ONCE, LAST DOSE PRIOR TO EVENT

REACTIONS (1)
  - Illness [Recovered/Resolved]
